FAERS Safety Report 14456861 (Version 1)
Quarter: 2018Q1

REPORT INFORMATION
  Report Type: Spontaneous
  Country: US (occurrence: US)
  Receive Date: 20180126
  Receipt Date: 20180126
  Transmission Date: 20180509
  Serious: No
  Sender: FDA-Public Use
  Company Number: None

PATIENT
  Age: 55 Year
  Sex: Female
  Weight: 63.6 kg

DRUGS (1)
  1. IBRANCE [Suspect]
     Active Substance: PALBOCICLIB
     Indication: BREAST CANCER
     Dosage: 75MG 1C QD FRO 21 DAYS BY MOUTH
     Route: 048
     Dates: start: 20171030

REACTIONS (1)
  - Chromaturia [None]

NARRATIVE: CASE EVENT DATE: 20171108
